FAERS Safety Report 8530541-7 (Version None)
Quarter: 2012Q3

REPORT INFORMATION
  Report Type: 
  Country: None (occurrence: None)
  Receive Date: 20120723
  Receipt Date: 20120713
  Transmission Date: 20120928
  Serious: Yes (Death, Other)
  Sender: FDA-Public Use
  Company Number: US-BAYER-2012-023924

PATIENT
  Age: 42 Year
  Sex: Female
  Weight: 74 kg

DRUGS (2)
  1. YAZ [Suspect]
     Indication: INSOMNIA
  2. YAZ [Suspect]
     Indication: AFFECTIVE DISORDER
     Dosage: UNK
     Dates: start: 20090601, end: 20100228

REACTIONS (7)
  - INJURY [None]
  - VENTRICULAR FIBRILLATION [None]
  - PORTAL VEIN THROMBOSIS [None]
  - DYSPNOEA [None]
  - CARDIAC ARREST [None]
  - INTESTINAL ISCHAEMIA [None]
  - SUDDEN CARDIAC DEATH [None]
